FAERS Safety Report 4569319-8 (Version None)
Quarter: 2005Q1

REPORT INFORMATION
  Report Type: 
  Country: None (occurrence: None)
  Receive Date: 20050201
  Receipt Date: 20050119
  Transmission Date: 20050727
  Serious: Yes (Other)
  Sender: FDA-Public Use
  Company Number: 2005015808

PATIENT
  Age: 63 Year
  Sex: Female

DRUGS (1)
  1. DIFLUCAN [Suspect]
     Indication: CRYPTOCOCCOSIS
     Dates: end: 20050112

REACTIONS (1)
  - ASPERGILLOSIS [None]
